FAERS Safety Report 23462530 (Version 1)
Quarter: 2024Q1

REPORT INFORMATION
  Report Type: Spontaneous
  Country: US (occurrence: None)
  Receive Date: 20240130
  Receipt Date: 20240130
  Transmission Date: 20240409
  Serious: Yes (Hospitalization)
  Sender: FDA-Public Use
  Company Number: None

PATIENT
  Age: 60 Year
  Sex: Male

DRUGS (11)
  1. TACROLIMUS [Suspect]
     Active Substance: TACROLIMUS
     Indication: Immunosuppression
     Dosage: FREQUENCY : TWICE A DAY;?
     Route: 048
  2. MYCOPHENOLIC ACID [Suspect]
     Active Substance: MYCOPHENOLIC ACID
     Indication: Immunosuppression
     Dosage: FREQUENCY : TWICE A DAY;?
     Route: 048
  3. esomeprazole dr [Concomitant]
  4. valacyclovir [Concomitant]
  5. aspirin [Concomitant]
  6. PREDNISONE [Concomitant]
  7. SODIUM BICARBONATE [Concomitant]
  8. Metoprolol er succinate [Concomitant]
  9. Vitamin c [Concomitant]
  10. TRAZODONE [Concomitant]
  11. FERROUS GLUCONATE [Concomitant]

REACTIONS (2)
  - Gastrointestinal disorder [None]
  - Disease complication [None]

NARRATIVE: CASE EVENT DATE: 20240123
